FAERS Safety Report 4679982-9 (Version None)
Quarter: 2005Q2

REPORT INFORMATION
  Report Type: 
  Country: None (occurrence: None)
  Receive Date: 20050531
  Receipt Date: 20050527
  Transmission Date: 20051028
  Serious: Yes (Hospitalization)
  Sender: FDA-Public Use
  Company Number: B0381643A

PATIENT
  Age: 65 Year
  Sex: Male

DRUGS (18)
  1. NADROPARINE CALCIUM (NADROPARINE CALCIUM ) [Suspect]
     Dosage: SUBCUTANEOUS
     Route: 058
     Dates: start: 20050221
  2. AVANDIA [Suspect]
     Indication: DIABETES MELLITUS NON-INSULIN-DEPENDENT
     Dosage: 4 MG/ORAL
     Route: 048
     Dates: end: 20050228
  3. FROSEMIDE TABLET (FUROSEMIDE) [Suspect]
     Indication: ESSENTIAL HYPERTENSION
     Dosage: SEE IMAGE
     Route: 048
     Dates: end: 20050228
  4. PANTOPRAZOLE  TABLET (PATOPRAZOLE ) [Suspect]
     Dosage: 40 MG /PER DAY / ORAL
     Route: 048
     Dates: end: 20050228
  5. ACETAMINOPHEN [Suspect]
     Dosage: 2 TABLET / FOUR TIMES PER DAY/ ORAL
     Route: 048
     Dates: start: 20050216, end: 20050228
  6. CIPROFLOXACIN HCL [Suspect]
     Dosage: 1 TABLET / PER DAY / ORAL
     Route: 048
     Dates: start: 20050216, end: 20050217
  7. METRONIDAZOLE [Suspect]
     Indication: OPEN WOUND
     Dosage: 500 MG / PER DAY /  ORAL
     Route: 048
     Dates: start: 20050216, end: 20050226
  8. PIPAMPERONE (PIPAMPERONE) [Suspect]
     Dosage: 5 UNKNOW/ PER DAY / ORAL
     Route: 048
     Dates: start: 20050221, end: 20050228
  9. CIPROFLOXACIN TABLET ICIPROFLOXACIN) [Suspect]
     Indication: OPEN WOUND
     Dosage: 500 MG/ PER DAY / ORAL
     Route: 048
     Dates: start: 20050218, end: 20050226
  10. LEVOCETIRIZINE HCL (LIEVOCETIRIZINE HCL) [Suspect]
     Dosage: 1 UNKNOWN / PER DAY / ORAL
     Route: 048
     Dates: start: 20050218, end: 20050228
  11. DIMETHINDENE MALEATE (DIMETHINDENE MALEATE) [Suspect]
     Dosage: ORAL
     Route: 048
     Dates: start: 20050221, end: 20050228
  12. METOCLOPRAMIDE HCL DROP (S) (METOCLOPRAMIDE HCL) [Suspect]
     Dosage: 15 DROPS (S) THREE TIMES PER DAY/ ORAL
     Route: 048
     Dates: start: 20050221, end: 20050228
  13. TRAMADOL HYDROCHLORIDE  DROP(S) (TRAMADOL HYDROCHLORIDE) [Suspect]
     Dosage: 20 DROP(S) / PER DAY / ORAL
     Route: 048
     Dates: start: 20050217, end: 20050223
  14. THYROXINE SODIUM [Concomitant]
  15. MAGNESIUM ASPARTATE [Concomitant]
  16. TORSEMIDE [Concomitant]
  17. LORMETAZEPAM [Concomitant]
  18. METFORMIN HCL [Concomitant]

REACTIONS (6)
  - ALANINE AMINOTRANSFERASE INCREASED [None]
  - ASPARTATE AMINOTRANSFERASE INCREASED [None]
  - BLOOD ALKALINE PHOSPHATASE INCREASED [None]
  - C-REACTIVE PROTEIN INCREASED [None]
  - CHOLESTASIS [None]
  - GAMMA-GLUTAMYLTRANSFERASE INCREASED [None]
